FAERS Safety Report 4501856-4 (Version None)
Quarter: 2004Q4

REPORT INFORMATION
  Report Type: 
  Country: None (occurrence: None)
  Receive Date: 20041116
  Receipt Date: 20041108
  Transmission Date: 20050328
  Serious: Yes (Death)
  Sender: FDA-Public Use
  Company Number: JP-JNJFOC-20040203116

PATIENT
  Sex: Female

DRUGS (5)
  1. DUROTEP [Suspect]
     Indication: CANCER PAIN
     Route: 062
  2. AMLODIPINE BESYLATE [Concomitant]
     Indication: HYPERTENSION
     Route: 049
  3. ATENOLOL [Concomitant]
     Indication: HYPERTENSION
     Route: 049
  4. TRIAZOLAM [Concomitant]
     Indication: SLEEP DISORDER
     Route: 049
  5. FUROSEMIDE [Concomitant]
     Indication: DIURETIC THERAPY
     Route: 049

REACTIONS (1)
  - MALIGNANT NEOPLASM PROGRESSION [None]
